FAERS Safety Report 13331448 (Version 1)
Quarter: 2017Q1

REPORT INFORMATION
  Report Type: Spontaneous
  Country: US (occurrence: US)
  Receive Date: 20170313
  Receipt Date: 20170313
  Transmission Date: 20170428
  Serious: No
  Sender: FDA-Public Use
  Company Number: US-ALEXION PHARMACEUTICALS INC.-A201702288

PATIENT
  Sex: Male

DRUGS (1)
  1. SOLIRIS [Suspect]
     Active Substance: ECULIZUMAB
     Indication: PAROXYSMAL NOCTURNAL HAEMOGLOBINURIA
     Route: 042

REACTIONS (6)
  - Intervertebral disc degeneration [Unknown]
  - Oxygen saturation decreased [Unknown]
  - Sleep apnoea syndrome [Unknown]
  - Musculoskeletal stiffness [Not Recovered/Not Resolved]
  - Confusional state [Unknown]
  - Dizziness [Unknown]
